FAERS Safety Report 6028795-4 (Version None)
Quarter: 2009Q1

REPORT INFORMATION
  Report Type: 
  Country: None (occurrence: None)
  Receive Date: 20090106
  Receipt Date: 20090105
  Transmission Date: 20090719
  Serious: Yes (Other)
  Sender: FDA-Public Use
  Company Number: B0552568A

PATIENT
  Sex: Male

DRUGS (2)
  1. PAROXETINE HCL [Suspect]
     Indication: DEPRESSION
     Route: 065
     Dates: start: 20000101, end: 20040101
  2. PAROXETINE HCL [Suspect]
     Route: 065
     Dates: start: 20040101, end: 20080101

REACTIONS (6)
  - ANXIETY [None]
  - DECREASED APPETITE [None]
  - HYPOAESTHESIA [None]
  - MENTAL DISORDER [None]
  - PANIC ATTACK [None]
  - SUICIDAL IDEATION [None]
